FAERS Safety Report 5105158-7 (Version None)
Quarter: 2006Q3

REPORT INFORMATION
  Report Type: 
  Country: None (occurrence: None)
  Receive Date: 20060914
  Receipt Date: 20051103
  Transmission Date: 20061208
  Serious: Yes (Hospitalization)
  Sender: FDA-Public Use
  Company Number: BE-ABBOTT-05P-013-0316544-00

PATIENT
  Sex: Male
  Weight: 65 kg

DRUGS (7)
  1. HUMIRA [Suspect]
     Indication: RHEUMATOID ARTHRITIS
     Dosage: 40 MILLIGRAM
     Route: 058
     Dates: start: 20040809, end: 20041102
  2. HUMIRA [Suspect]
     Dosage: 40 MILLIGRAM
     Route: 058
     Dates: start: 20050319
  3. METHOTREXATE [Concomitant]
     Indication: RHEUMATOID ARTHRITIS
     Dates: start: 20030720
  4. DOCANTY [Concomitant]
     Indication: ABDOMINAL PAIN UPPER
     Dates: start: 20041029
  5. FELODIPINE [Concomitant]
     Indication: HYPERTENSION
     Dates: start: 20010502
  6. FOLIC ACID [Concomitant]
     Indication: VITAMIN SUPPLEMENTATION
     Dates: start: 20030701
  7. COMMERCIAL HUMIRA [Concomitant]
     Indication: RHEUMATOID ARTHRITIS
     Dosage: 40 MILLIGRAM
     Route: 058
     Dates: start: 20040726

REACTIONS (1)
  - OSTEOARTHRITIS [None]
